FAERS Safety Report 9153710 (Version 5)
Quarter: 2013Q4

REPORT INFORMATION
  Report Type: Spontaneous
  Country: FR (occurrence: None)
  Receive Date: 20130307
  Receipt Date: 20131204
  Transmission Date: 20140711
  Serious: Yes (Death, Life-Threatening, Hospitalization, Other)
  Sender: FDA-Public Use
  Company Number: SYM-2013-01276

PATIENT
  Age: 55 Year
  Sex: Female

DRUGS (13)
  1. 5-FU [Suspect]
     Indication: COLORECTAL CANCER METASTATIC
     Dosage: EVERY OTHER WEEK,
     Route: 040
     Dates: start: 20121123, end: 20121123
  2. AFLIBERCEPT [Suspect]
     Indication: COLORECTAL CANCER METASTATIC
     Dosage: (NOT OTHERWISE SPECIFIED)?EVERY OTHER WEEK,?
     Route: 042
     Dates: start: 20121123, end: 20121123
  3. IRINOTECAN [Suspect]
     Indication: COLORECTAL CANCER METASTATIC
     Dosage: EVERY OTHER WEEK, (NOT OTHERWISE SPECIFIED)
     Route: 042
     Dates: start: 20121123, end: 20121123
  4. LEUCOVORIN [Suspect]
     Indication: COLORECTAL CANCER METASTATIC
     Dosage: EVERY OTHER WEEK,  (NOT OTHERWISE SPECIFIED)
     Route: 042
     Dates: start: 20121123, end: 20121123
  5. ATROPINE [Concomitant]
  6. ACTIQ [Concomitant]
  7. STILNOX(ZOLPIDEM TARTRATE)(ZOLPIDEM TARTRATE) [Concomitant]
  8. EUPANTOL(PANTOPRAZOLE SODIUM SESQUIHYDRATE)(PANTOPRAZOLE SODIUM SESQUIHYDRATE) [Concomitant]
  9. ORACILLINE(PHENOXYMETHYLPENICILLIN)(PHENOXYMETHYLPENICILLIN) [Concomitant]
  10. FENTANYL(FENTANYL) (FENTANYL) [Concomitant]
  11. PERFALGAN [Concomitant]
  12. ZOPHREN(ONDANSETRON HYDROCHLORIDE)(ONDANSETRON HYDROCHLORIDE) [Concomitant]
  13. SOLUMEDROL(METHYLPREDNISOLONE SODIUM SUCCINATE)(METHYLPREDNISOLONE SODIUM SUCCINATE) [Concomitant]

REACTIONS (8)
  - Hyperglycaemia [None]
  - Hypotension [None]
  - Agitation [None]
  - Pulmonary oedema [None]
  - White blood cell count decreased [None]
  - Septic shock [None]
  - Discomfort [None]
  - Febrile neutropenia [None]
